FAERS Safety Report 11394977 (Version 1)
Quarter: 2015Q3

REPORT INFORMATION
  Report Type: Spontaneous
  Country: US (occurrence: US)
  Receive Date: 20150819
  Receipt Date: 20150819
  Transmission Date: 20151125
  Serious: Yes (Other)
  Sender: FDA-Public Use
  Company Number: US-PFIZER INC-2015275362

PATIENT
  Age: 55 Year
  Sex: Female
  Weight: 89 kg

DRUGS (4)
  1. VIVELLEDOT [Concomitant]
     Indication: MENOPAUSE
     Dosage: PATCH CHANGES IT EVERY 3 TO 4 DAYS
     Route: 062
  2. GABAPENTIN. [Suspect]
     Active Substance: GABAPENTIN
     Indication: POST HERPETIC NEURALGIA
     Dosage: 400 MG, 3X/DAY
     Route: 048
     Dates: start: 20150814, end: 20150815
  3. LYSINE [Concomitant]
     Active Substance: LYSINE
     Indication: POST HERPETIC NEURALGIA
     Dosage: 500 MG, IN THE MORNING AND AT NIGHT
  4. LORTAB [Concomitant]
     Active Substance: ACETAMINOPHEN\HYDROCODONE BITARTRATE
     Indication: PAIN
     Dosage: 5-325MG, 1 TABLET EVERY 6 HOURS
     Dates: start: 20150814

REACTIONS (7)
  - Crying [Recovered/Resolved]
  - Dysarthria [Recovered/Resolved]
  - Gait disturbance [Recovered/Resolved]
  - Hypokinesia [Recovered/Resolved]
  - Muscle spasms [Recovered/Resolved]
  - Self-injurious ideation [Recovered/Resolved]
  - Tongue disorder [Recovered/Resolved]

NARRATIVE: CASE EVENT DATE: 20150815
